FAERS Safety Report 11788988 (Version 2)
Quarter: 2017Q1

REPORT INFORMATION
  Report Type: Spontaneous
  Country: US (occurrence: US)
  Receive Date: 20151201
  Receipt Date: 20170124
  Transmission Date: 20170428
  Serious: No
  Sender: FDA-Public Use
  Company Number: US-APOTEX-2015AP007650

PATIENT
  Sex: Female

DRUGS (1)
  1. FENTANYL TRANSDERMAL SYSTEM [Suspect]
     Active Substance: FENTANYL
     Indication: PAIN
     Dosage: 50 ?G, Q.H.
     Route: 062

REACTIONS (3)
  - Drug effect incomplete [Unknown]
  - Breakthrough pain [Unknown]
  - Therapeutic response unexpected [Unknown]
